FAERS Safety Report 14922816 (Version 1)
Quarter: 2018Q2

REPORT INFORMATION
  Report Type: Spontaneous
  Country: FR (occurrence: FR)
  Receive Date: 20180522
  Receipt Date: 20180522
  Transmission Date: 20180711
  Serious: Yes (Hospitalization)
  Sender: FDA-Public Use
  Company Number: FR-ASTRAZENECA-2018SE66143

PATIENT
  Age: 48 Year
  Sex: Female
  Weight: 54 kg

DRUGS (4)
  1. XEROQUEL [Suspect]
     Active Substance: QUETIAPINE FUMARATE
     Indication: MANIA
     Route: 048
     Dates: start: 20180414, end: 20180425
  2. DOLIPRANE [Concomitant]
     Active Substance: ACETAMINOPHEN
     Indication: PAIN
     Route: 048
  3. LOXAPAC [Suspect]
     Active Substance: LOXAPINE
     Indication: MANIA
     Route: 048
     Dates: start: 20180419, end: 20180425
  4. VALIUM [Concomitant]
     Active Substance: DIAZEPAM
     Indication: MANIA
     Dates: start: 20180418, end: 20180425

REACTIONS (1)
  - Hepatocellular injury [Recovered/Resolved]

NARRATIVE: CASE EVENT DATE: 20180423
